FAERS Safety Report 5873615-1 (Version None)
Quarter: 2008Q3

REPORT INFORMATION
  Report Type: 
  Country: None (occurrence: None)
  Receive Date: 20080908
  Receipt Date: 20080827
  Transmission Date: 20090109
  Serious: Yes (Life-Threatening, Hospitalization, Congenital Anomaly)
  Sender: FDA-Public Use
  Company Number: A0640660A

PATIENT
  Sex: Female
  Weight: 3.1 kg

DRUGS (18)
  1. PAXIL CR [Suspect]
     Indication: DEPRESSION
     Dates: start: 20030101
  2. AMBIEN [Concomitant]
     Dates: start: 20030201
  3. VITAMIN TAB [Concomitant]
     Dates: start: 20030201
  4. IBUPROFEN [Concomitant]
  5. EFFEXOR XR [Concomitant]
     Dates: start: 20030301
  6. SULFAMETHOXAZOLE AND TRIMETHOPRIM [Concomitant]
     Dates: start: 20030301
  7. MACROBID [Concomitant]
     Dates: start: 20030401
  8. FLONASE [Concomitant]
     Dates: start: 20030501
  9. PROCTOFOAM [Concomitant]
     Dates: start: 20030501
  10. DIPHENHYDRAMINE HCL [Concomitant]
     Dates: start: 20030601
  11. HYDROCODONE BITARTRATE + ACETAMINOPHEN [Concomitant]
     Dates: start: 20030801
  12. FERROUS SULFATE TAB [Concomitant]
     Dates: start: 20030901
  13. CEPHALEXIN [Concomitant]
     Dates: start: 20030901
  14. BENADRYL [Concomitant]
     Dates: start: 19900101
  15. MOTRIN [Concomitant]
     Dates: start: 19900101
  16. ADVIL [Concomitant]
     Dates: start: 19900101
  17. HYDROCORTISONE [Concomitant]
     Dates: start: 19900101
  18. TYLENOL (CAPLET) [Concomitant]
     Dates: start: 19900101

REACTIONS (31)
  - ANXIETY [None]
  - AORTIC VALVE INCOMPETENCE [None]
  - BICUSPID AORTIC VALVE [None]
  - BRADYCARDIA [None]
  - BUNDLE BRANCH BLOCK LEFT [None]
  - CARDIAC FAILURE CONGESTIVE [None]
  - CARDIAC MURMUR [None]
  - CARDIOMEGALY [None]
  - COARCTATION OF THE AORTA [None]
  - CONGENITAL AORTIC STENOSIS [None]
  - CONGENITAL MITRAL VALVE STENOSIS [None]
  - CYANOSIS [None]
  - DEVELOPMENTAL DELAY [None]
  - DRUG EXPOSURE DURING PREGNANCY [None]
  - EMOTIONAL DISORDER [None]
  - HEART DISEASE CONGENITAL [None]
  - HEART VALVE STENOSIS [None]
  - HYPERTENSION [None]
  - INJURY [None]
  - LEFT VENTRICLE OUTFLOW TRACT OBSTRUCTION [None]
  - LEFT VENTRICULAR HYPERTROPHY [None]
  - LUNG DISORDER [None]
  - PAIN [None]
  - PERSISTENT FOETAL CIRCULATION [None]
  - QRS AXIS ABNORMAL [None]
  - RESPIRATORY DISTRESS [None]
  - SCAR [None]
  - SINUS ARRHYTHMIA [None]
  - SPEECH DISORDER DEVELOPMENTAL [None]
  - SUPRAVENTRICULAR TACHYCARDIA [None]
  - TACHYPNOEA [None]
